FAERS Safety Report 7925942-1 (Version None)
Quarter: 2011Q4

REPORT INFORMATION
  Report Type: 
  Country: None (occurrence: None)
  Receive Date: 20111118
  Receipt Date: 20110415
  Transmission Date: 20120403
  Serious: No
  Sender: FDA-Public Use
  Company Number: US-AMGEN-USASP2011020047

PATIENT
  Sex: Male

DRUGS (2)
  1. ENBREL [Suspect]
     Indication: RHEUMATOID ARTHRITIS
     Dosage: 50 MG, QWK
     Dates: start: 20090915
  2. TREXALL [Concomitant]
     Dosage: 1 MG, QWK
     Dates: start: 20090801

REACTIONS (5)
  - COUGH [None]
  - CHILLS [None]
  - RHINORRHOEA [None]
  - NASOPHARYNGITIS [None]
  - INJECTION SITE PAIN [None]
